FAERS Safety Report 7702209-8 (Version None)
Quarter: 2011Q3

REPORT INFORMATION
  Report Type: 
  Country: None (occurrence: None)
  Receive Date: 20110822
  Receipt Date: 20110808
  Transmission Date: 20111222
  Serious: Yes (Hospitalization, Other)
  Sender: FDA-Public Use
  Company Number: US-BAYER-2011-070849

PATIENT
  Age: 63 Year
  Sex: Female

DRUGS (1)
  1. COLECALCIFEROL [Suspect]
     Indication: VITAMIN D DEFICIENCY
     Dosage: 50000 IU, TID
     Route: 048

REACTIONS (4)
  - HYPERVITAMINOSIS D [None]
  - CONFUSIONAL STATE [None]
  - HYPERCALCAEMIA [None]
  - RENAL FAILURE ACUTE [None]
